FAERS Safety Report 5921148-6 (Version None)
Quarter: 2008Q4

REPORT INFORMATION
  Report Type: 
  Country: None (occurrence: None)
  Receive Date: 20081016
  Receipt Date: 20071130
  Transmission Date: 20090506
  Serious: No
  Sender: FDA-Public Use
  Company Number: US-BRISTOL-MYERS SQUIBB COMPANY-13999412

PATIENT
  Age: 48 Year
  Sex: Female

DRUGS (1)
  1. MEGACE [Suspect]
     Route: 048

REACTIONS (1)
  - NAUSEA [None]
